FAERS Safety Report 5140216-2 (Version None)
Quarter: 2006Q4

REPORT INFORMATION
  Report Type: 
  Country: None (occurrence: None)
  Receive Date: 20061031
  Receipt Date: 20061025
  Transmission Date: 20070319
  Serious: Yes (Life-Threatening, Hospitalization)
  Sender: FDA-Public Use
  Company Number: ES-BRACCO-BRO-010788

PATIENT
  Sex: Female
  Weight: 51 kg

DRUGS (1)
  1. PROHANCE [Suspect]
     Route: 050
     Dates: start: 20060927, end: 20060927

REACTIONS (3)
  - DISORIENTATION [None]
  - LOSS OF CONSCIOUSNESS [None]
  - NEUROLOGICAL SYMPTOM [None]
